FAERS Safety Report 24984520 (Version 2)
Quarter: 2025Q1

REPORT INFORMATION
  Report Type: Spontaneous
  Country: IN (occurrence: IN)
  Receive Date: 20250219
  Receipt Date: 20250228
  Transmission Date: 20250408
  Serious: Yes (Death, Hospitalization)
  Sender: ROCHE
  Company Number: IN-ROCHE-10000069250

PATIENT
  Age: 49 Year
  Sex: Male

DRUGS (3)
  1. TECENTRIQ [Suspect]
     Active Substance: ATEZOLIZUMAB
     Indication: Hepatocellular carcinoma
     Route: 042
     Dates: start: 20240825
  2. TECENTRIQ [Suspect]
     Active Substance: ATEZOLIZUMAB
     Indication: Liver disorder
  3. TECENTRIQ [Suspect]
     Active Substance: ATEZOLIZUMAB
     Indication: Metastases to bone

REACTIONS (10)
  - Off label use [Unknown]
  - Haemoglobin decreased [Unknown]
  - White blood cell count decreased [Unknown]
  - Platelet count decreased [Unknown]
  - Blood albumin decreased [Unknown]
  - Malaise [Unknown]
  - Liver function test abnormal [Unknown]
  - Platelet count abnormal [Unknown]
  - Malignant neoplasm progression [Fatal]
  - Multiple organ dysfunction syndrome [Fatal]
